FAERS Safety Report 16049787 (Version 2)
Quarter: 2019Q1

REPORT INFORMATION
  Report Type: Report from Study
  Country: US (occurrence: US)
  Receive Date: 20190307
  Receipt Date: 20190322
  Transmission Date: 20190418
  Serious: Yes (Other)
  Sender: FDA-Public Use
  Company Number: US-BIOGEN-2019BI00704313

PATIENT
  Age: 50 Year
  Sex: Female

DRUGS (1)
  1. TYSABRI [Suspect]
     Active Substance: NATALIZUMAB
     Indication: MULTIPLE SCLEROSIS
     Dosage: INFUSED OVER 1 HOUR
     Route: 042
     Dates: start: 20110809

REACTIONS (4)
  - Visual acuity reduced [Unknown]
  - Urinary tract infection [Recovered/Resolved with Sequelae]
  - Renal impairment [Not Recovered/Not Resolved]
  - Urinary tract infection staphylococcal [Recovered/Resolved]

NARRATIVE: CASE EVENT DATE: 201802
